FAERS Safety Report 16813758 (Version 1)
Quarter: 2019Q3

REPORT INFORMATION
  Report Type: Spontaneous
  Country: US (occurrence: US)
  Receive Date: 20190917
  Receipt Date: 20190917
  Transmission Date: 20191005
  Serious: Yes (Hospitalization, Other)
  Sender: FDA-Public Use
  Company Number: US-MICRO LABS LIMITED-ML2019-02453

PATIENT
  Age: 24 Year
  Sex: Female

DRUGS (1)
  1. DIPHENHYDRAMINE HYDROCHLORIDE. [Suspect]
     Active Substance: DIPHENHYDRAMINE HYDROCHLORIDE
     Dosage: 18 G (360 PILLS OF 50 MG) OVER-THE-COUNTER DIPHENHYDRAMINE
     Route: 048

REACTIONS (11)
  - Electrocardiogram QT prolonged [Recovered/Resolved]
  - Metabolic acidosis [Unknown]
  - Overdose [Unknown]
  - Suicide attempt [Unknown]
  - Atrioventricular block first degree [Recovered/Resolved]
  - Generalised tonic-clonic seizure [Recovered/Resolved]
  - Sinus tachycardia [Recovered/Resolved]
  - Encephalopathy [Recovering/Resolving]
  - Hypotension [Recovered/Resolved]
  - Confusional state [Recovering/Resolving]
  - Electrocardiogram QRS complex prolonged [Recovered/Resolved]
